FAERS Safety Report 13697898 (Version 1)
Quarter: 2017Q2

REPORT INFORMATION
  Report Type: Spontaneous
  Country: FR (occurrence: FR)
  Receive Date: 20170628
  Receipt Date: 20170628
  Transmission Date: 20170830
  Serious: Yes (Other)
  Sender: FDA-Public Use
  Company Number: FR-BAYER-2017-123602

PATIENT
  Age: 39 Year
  Sex: Female
  Weight: 52 kg

DRUGS (1)
  1. MIRENA [Suspect]
     Active Substance: LEVONORGESTREL
     Indication: CONTRACEPTION
     Dosage: 20 MCG/24HR, CONT
     Route: 015
     Dates: start: 20070515, end: 20070905

REACTIONS (21)
  - Hyperchlorhydria [Recovering/Resolving]
  - Tinnitus [Recovering/Resolving]
  - Pollakiuria [Recovering/Resolving]
  - Illness anxiety disorder [Recovering/Resolving]
  - Insomnia [Recovering/Resolving]
  - Anxiety [Recovering/Resolving]
  - Agoraphobia [Recovering/Resolving]
  - Depression [Recovering/Resolving]
  - Amnesia [Recovering/Resolving]
  - Lymphadenopathy [Recovering/Resolving]
  - Migraine [Recovering/Resolving]
  - Hypertension [Recovering/Resolving]
  - Tachycardia [Recovering/Resolving]
  - Formication [Recovering/Resolving]
  - Menorrhagia [Recovering/Resolving]
  - Muscle contractions involuntary [Recovering/Resolving]
  - Dyspnoea [Recovering/Resolving]
  - Muscle spasms [Recovering/Resolving]
  - Hypoglycaemia [Recovering/Resolving]
  - Phobia [Recovering/Resolving]
  - Extrasystoles [Recovering/Resolving]

NARRATIVE: CASE EVENT DATE: 20070517
